FAERS Safety Report 7017083-5 (Version None)
Quarter: 2010Q3

REPORT INFORMATION
  Report Type: 
  Country: None (occurrence: None)
  Receive Date: 20100928
  Receipt Date: 20100914
  Transmission Date: 20110219
  Serious: Yes (Hospitalization)
  Sender: FDA-Public Use
  Company Number: FR-SP-2010-04997

PATIENT
  Age: 61 Year
  Sex: Male

DRUGS (1)
  1. BCG  THERAPEUTICS [Suspect]
     Indication: BLADDER CANCER
     Route: 043

REACTIONS (3)
  - ARTHRITIS REACTIVE [None]
  - POLYARTHRITIS [None]
  - PYREXIA [None]
